FAERS Safety Report 23748185 (Version 3)
Quarter: 2025Q1

REPORT INFORMATION
  Report Type: Report from Study
  Country: US (occurrence: US)
  Receive Date: 20240416
  Receipt Date: 20250115
  Transmission Date: 20250408
  Serious: Yes (Hospitalization, Other)
  Sender: SANOFI AVENTIS
  Company Number: US-SA-SAC20240408000839

PATIENT
  Age: 90 Year
  Sex: Male

DRUGS (2)
  1. DUPILUMAB [Suspect]
     Active Substance: DUPILUMAB
     Indication: Dermatitis atopic
     Dosage: 300 MG, QOW
     Route: 058
     Dates: start: 20230101, end: 2024
  2. DUPILUMAB [Suspect]
     Active Substance: DUPILUMAB
     Dosage: 300 UNK
     Route: 058

REACTIONS (8)
  - Pulmonary oedema [Recovering/Resolving]
  - Aphonia [Unknown]
  - Pain [Unknown]
  - Hypotension [Unknown]
  - Weight increased [Not Recovered/Not Resolved]
  - Dyspnoea [Unknown]
  - Insomnia [Unknown]
  - Arthralgia [Unknown]

NARRATIVE: CASE EVENT DATE: 20240429
